FAERS Safety Report 25647038 (Version 1)
Quarter: 2025Q3

REPORT INFORMATION
  Report Type: Spontaneous
  Country: AU (occurrence: AU)
  Receive Date: 20250806
  Receipt Date: 20250806
  Transmission Date: 20251021
  Serious: Yes (Other)
  Sender: CURRAX PHARMACEUTICALS
  Company Number: AU-INOVA PHARMACEUTICALS (SINGAPORE) PTE LIMITED-2025COMG003385

PATIENT
  Sex: Female

DRUGS (1)
  1. CONTRAVE [Suspect]
     Active Substance: BUPROPION HYDROCHLORIDE\NALTREXONE HYDROCHLORIDE
     Indication: Product used for unknown indication
     Dosage: ONCE DAILY
     Route: 065

REACTIONS (2)
  - Foreign body in throat [Recovered/Resolved]
  - Product use complaint [Unknown]
